FAERS Safety Report 5386223-6 (Version None)
Quarter: 2007Q3

REPORT INFORMATION
  Report Type: 
  Country: None (occurrence: None)
  Receive Date: 20070713
  Receipt Date: 20070703
  Transmission Date: 20080115
  Serious: Yes (Hospitalization, Other)
  Sender: FDA-Public Use
  Company Number: PHRM2007FR01805

PATIENT
  Sex: Female

DRUGS (5)
  1. COVERSYL /FRA/ [Concomitant]
     Dosage: 4 MG, BID
     Route: 048
  2. LEVOTHYROXINE SODIUM [Concomitant]
     Dosage: 175 UG, UNK
     Route: 048
  3. PREVISCAN [Concomitant]
     Dosage: 10 MG, QD
     Route: 048
  4. DOSTINEX [Concomitant]
     Dosage: 0.5 MG, QW
     Route: 048
  5. LESCOL [Suspect]
     Indication: HYPERCHOLESTEROLAEMIA
     Dosage: 80 MG, QD
     Route: 048
     Dates: start: 20050101, end: 20070702

REACTIONS (10)
  - ARTHRALGIA [None]
  - DIZZINESS [None]
  - HEADACHE [None]
  - HOT FLUSH [None]
  - LIGAMENT RUPTURE [None]
  - MALAISE [None]
  - PITUITARY TUMOUR BENIGN [None]
  - SURGERY [None]
  - TENDONITIS [None]
  - VOMITING [None]
